FAERS Safety Report 14287196 (Version 2)
Quarter: 2018Q1

REPORT INFORMATION
  Report Type: Report from Study
  Country: None (occurrence: DE)
  Receive Date: 20171214
  Receipt Date: 20180124
  Transmission Date: 20180509
  Serious: Yes (Other)
  Sender: FDA-Public Use
  Company Number: DE-ABBVIE-17K-062-2193766-00

PATIENT
  Age: 74 Year
  Sex: Male

DRUGS (3)
  1. DUODOPA [Suspect]
     Active Substance: CARBIDOPA\LEVODOPA
     Dosage: MD 8.0 ML, CRD 4.0 ML/H; ED 2.5 ML
     Route: 050
  2. PREGABALIN. [Concomitant]
     Active Substance: PREGABALIN
     Indication: PRODUCT USED FOR UNKNOWN INDICATION
     Dosage: 1-1-2  FREQUENCY
  3. DUODOPA [Suspect]
     Active Substance: CARBIDOPA\LEVODOPA
     Indication: PARKINSON^S DISEASE
     Dosage: MD 8.0 ML, CRD 3.0 ML/H; ED 2.5 ML
     Route: 050
     Dates: start: 20150410

REACTIONS (12)
  - Mobility decreased [Not Recovered/Not Resolved]
  - Blood uric acid increased [Unknown]
  - Blood albumin increased [Unknown]
  - White blood cell count increased [Unknown]
  - Lymphocyte count decreased [Unknown]
  - Nerve conduction studies abnormal [Unknown]
  - Haemoglobin decreased [Unknown]
  - Protein total increased [Unknown]
  - Polyneuropathy [Not Recovered/Not Resolved]
  - Blood creatinine increased [Unknown]
  - Red blood cell count decreased [Unknown]
  - Mean cell haemoglobin concentration decreased [Unknown]

NARRATIVE: CASE EVENT DATE: 201509
